FAERS Safety Report 11258469 (Version 1)
Quarter: 2015Q3

REPORT INFORMATION
  Report Type: Report from Study
  Country: FR (occurrence: FR)
  Receive Date: 20150710
  Receipt Date: 20150710
  Transmission Date: 20151125
  Serious: Yes (Hospitalization, Other)
  Sender: FDA-Public Use
  Company Number: FR-GLAXOSMITHKLINE-FR2015GSK098295

PATIENT
  Age: 70 Year
  Sex: Male

DRUGS (7)
  1. PLAVIX [Concomitant]
     Active Substance: CLOPIDOGREL BISULFATE
  2. OMEGA-3-ACID ETHYL ESTERS. [Suspect]
     Active Substance: OMEGA-3-ACID ETHYL ESTERS
     Indication: ISCHAEMIC HEART DISEASE PROPHYLAXIS
     Dosage: UNK
     Dates: start: 20080724
  3. TAHOR [Concomitant]
     Active Substance: ATORVASTATIN CALCIUM
  4. CARDENSIEL [Concomitant]
     Active Substance: BISOPROLOL FUMARATE
  5. COVERSYL [Concomitant]
     Active Substance: PERINDOPRIL
  6. KARDEGIC [Concomitant]
     Active Substance: ASPIRIN LYSINE
  7. INSPRA [Concomitant]
     Active Substance: EPLERENONE

REACTIONS (2)
  - Arteriogram coronary [Unknown]
  - Acute coronary syndrome [Unknown]

NARRATIVE: CASE EVENT DATE: 20120308
